FAERS Safety Report 26210622 (Version 1)
Quarter: 2025Q4

REPORT INFORMATION
  Report Type: Spontaneous
  Country: TR (occurrence: TR)
  Receive Date: 20251230
  Receipt Date: 20251230
  Transmission Date: 20260117
  Serious: Yes (Other)
  Sender: ASTELLAS
  Company Number: TR-ASTELLAS-2025-AER-071089

PATIENT
  Age: 28 Year
  Sex: Male

DRUGS (2)
  1. XOSPATA [Suspect]
     Active Substance: GILTERITINIB
     Indication: Acute myeloid leukaemia recurrent
     Dosage: 120MG/DAY
     Route: 065
     Dates: start: 202307
  2. XOSPATA [Suspect]
     Active Substance: GILTERITINIB
     Dosage: 200MG/DAY (8 CYCLES)
     Route: 065
     Dates: end: 202403

REACTIONS (1)
  - Graft loss [Unknown]

NARRATIVE: CASE EVENT DATE: 20240101
